FAERS Safety Report 7237150-0 (Version None)
Quarter: 2011Q1

REPORT INFORMATION
  Report Type: 
  Country: None (occurrence: None)
  Receive Date: 20110121
  Receipt Date: 20101229
  Transmission Date: 20110831
  Serious: Yes (Death, Other)
  Sender: FDA-Public Use
  Company Number: US-BAYER-200933498NA

PATIENT
  Sex: Female

DRUGS (12)
  1. YAZ [Suspect]
     Dosage: YAZ AND/OR YASMIN
     Route: 064
  2. UNCODEABLE ^UNCLASSIFIABLE^ [Concomitant]
     Dosage: UNK
     Route: 064
     Dates: start: 20081101
  3. TANDENE [Concomitant]
     Route: 064
     Dates: start: 20080801
  4. TANDENE [Concomitant]
     Dosage: UNK
     Route: 064
     Dates: start: 20081101
  5. TANDENE [Concomitant]
     Dosage: UNK
     Route: 064
     Dates: start: 20081101
  6. YASMIN [Suspect]
     Indication: CONTRACEPTION
     Route: 064
  7. UNCODEABLE ^UNCLASSIFIABLE^ [Concomitant]
     Route: 064
     Dates: start: 20080801
  8. TANDENE [Concomitant]
     Route: 064
     Dates: start: 20080801
  9. YAZ [Suspect]
     Indication: CONTRACEPTION
     Dosage: YAZ AND/OR YASMIN
     Route: 064
  10. UNCODEABLE ^UNCLASSIFIABLE^ [Concomitant]
     Route: 064
     Dates: start: 20080801
  11. YASMIN [Suspect]
     Route: 064
  12. UNCODEABLE ^UNCLASSIFIABLE^ [Concomitant]
     Dosage: UNK
     Route: 064
     Dates: start: 20081101

REACTIONS (1)
  - THROMBOSIS [None]
